FAERS Safety Report 5930233-4 (Version None)
Quarter: 2008Q4

REPORT INFORMATION
  Report Type: 
  Country: None (occurrence: None)
  Receive Date: 20081024
  Receipt Date: 20081014
  Transmission Date: 20090506
  Serious: Yes (Hospitalization, Other)
  Sender: FDA-Public Use
  Company Number: JP-PFIZER INC-2008087731

PATIENT

DRUGS (4)
  1. VFEND [Suspect]
     Indication: SUICIDE ATTEMPT
     Dosage: TEXT:43 TABLETS (50 MG)
     Route: 048
     Dates: start: 20081007
  2. VFEND [Suspect]
     Dosage: TEXT:34 TABLETS
     Route: 048
     Dates: start: 20081009
  3. LENDORMIN [Suspect]
     Indication: SUICIDE ATTEMPT
     Dosage: TEXT:32 TABLETS (0.5 MG)
     Route: 048
     Dates: start: 20081007
  4. LENDORMIN [Suspect]
     Dosage: TEXT:29
     Route: 048
     Dates: start: 20081009

REACTIONS (2)
  - INCORRECT DOSE ADMINISTERED [None]
  - SUICIDE ATTEMPT [None]
